FAERS Safety Report 10205495 (Version 1)
Quarter: 2014Q2

REPORT INFORMATION
  Report Type: Spontaneous
  Country: US (occurrence: US)
  Receive Date: 20140529
  Receipt Date: 20140529
  Transmission Date: 20141212
  Serious: Yes (Other)
  Sender: FDA-Public Use
  Company Number: US-MYLANLABS-2014S1012090

PATIENT
  Age: 53 Year
  Sex: Female

DRUGS (6)
  1. LISINOPRIL [Suspect]
     Dosage: 20 MG DAILY
     Route: 065
  2. OLMESARTAN MEDOXOMIL [Suspect]
     Dosage: 40 MG DAILY
     Route: 065
  3. HYDROCHLOROTHIAZIDE [Suspect]
     Dosage: 25 MG DAILY
     Route: 065
  4. FUROSEMIDE [Suspect]
     Dosage: 40 MG DAILY
     Route: 065
  5. CELECOXIB [Suspect]
     Route: 065
  6. HYDROMORPHONE [Concomitant]
     Indication: ANAESTHESIA
     Route: 037

REACTIONS (2)
  - Renal failure acute [Recovered/Resolved]
  - Anuria [Recovered/Resolved]
